FAERS Safety Report 24527849 (Version 1)
Quarter: 2024Q4

REPORT INFORMATION
  Report Type: Spontaneous
  Country: RU (occurrence: RU)
  Receive Date: 20241021
  Receipt Date: 20241021
  Transmission Date: 20250115
  Serious: Yes (Hospitalization)
  Sender: SANDOZ
  Company Number: RU-SANDOZ-SDZ2024RU088266

PATIENT
  Sex: Male
  Weight: 67 kg

DRUGS (2)
  1. AMOXICILLIN\CLAVULANATE POTASSIUM [Suspect]
     Active Substance: AMOXICILLIN\CLAVULANATE POTASSIUM
     Indication: Nasopharyngitis
     Dosage: UNK
     Route: 048
     Dates: start: 20240929, end: 20240929
  2. ACETAMINOPHEN [Suspect]
     Active Substance: ACETAMINOPHEN
     Indication: Nasopharyngitis
     Dosage: UNK, TOOK 2 TABLETS 2-3  TIMES A DAY - PER OS
     Route: 048
     Dates: start: 20240929, end: 20240929

REACTIONS (4)
  - Body temperature increased [Recovering/Resolving]
  - Dysuria [Recovering/Resolving]
  - Dermatitis bullous [Recovering/Resolving]
  - Drug hypersensitivity [Unknown]

NARRATIVE: CASE EVENT DATE: 20240929
